FAERS Safety Report 4851424-X (Version None)
Quarter: 2005Q4

REPORT INFORMATION
  Report Type: 
  Country: None (occurrence: None)
  Receive Date: 20051208
  Receipt Date: 20051121
  Transmission Date: 20060501
  Serious: Yes (Life-Threatening, Hospitalization, Other)
  Sender: FDA-Public Use
  Company Number: WAES0511ESP00014

PATIENT
  Age: 5 Year
  Sex: Female

DRUGS (2)
  1. CASPOFUNGIN ACETATE [Suspect]
     Indication: FEBRILE NEUTROPENIA
     Dosage: IV
     Route: 042
     Dates: start: 20051110, end: 20051110
  2. INJ BLINDED THERAPY [Suspect]
     Indication: FEBRILE NEUTROPENIA
     Dosage: IV
     Route: 042
     Dates: start: 20051110, end: 20051110

REACTIONS (15)
  - APHASIA [None]
  - BLOOD BILIRUBIN INCREASED [None]
  - BLOOD PRESSURE DECREASED [None]
  - CIRCUMORAL OEDEMA [None]
  - FACE OEDEMA [None]
  - GRAFT VERSUS HOST DISEASE [None]
  - HEPATOSPLENOMEGALY [None]
  - INFUSION RELATED REACTION [None]
  - INTERSTITIAL LUNG DISEASE [None]
  - OXYGEN SATURATION DECREASED [None]
  - PRURITUS [None]
  - RASH [None]
  - SEPSIS [None]
  - TACHYCARDIA [None]
  - TACHYPNOEA [None]
